FAERS Safety Report 9118725 (Version 1)
Quarter: 2013Q1

REPORT INFORMATION
  Report Type: Spontaneous
  Country: RO (occurrence: None)
  Receive Date: 20130128
  Receipt Date: 20130128
  Transmission Date: 20140127
  Serious: Yes (Hospitalization)
  Sender: FDA-Public Use
  Company Number: 2013P1000738

PATIENT
  Age: 61 Year
  Sex: Female

DRUGS (2)
  1. METOPROLOL [Suspect]
  2. AMIODARONE [Suspect]

REACTIONS (2)
  - Drug interaction [None]
  - Bradycardia [None]
